FAERS Safety Report 21034707 (Version 3)
Quarter: 2022Q3

REPORT INFORMATION
  Report Type: Report from Study
  Country: US (occurrence: US)
  Receive Date: 20220701
  Receipt Date: 20220929
  Transmission Date: 20221027
  Serious: No
  Sender: FDA-Public Use
  Company Number: US-BIOVITRUM-2022US08377

PATIENT
  Age: 0 Year
  Sex: Male

DRUGS (2)
  1. KINERET [Suspect]
     Active Substance: ANAKINRA
     Indication: Pyrexia
     Dates: start: 202107
  2. KINERET [Suspect]
     Active Substance: ANAKINRA
     Dates: start: 20210801

REACTIONS (6)
  - Viral infection [Unknown]
  - Illness [Unknown]
  - Arthralgia [Unknown]
  - COVID-19 [Unknown]
  - Injection site erythema [Unknown]
  - Off label use [Unknown]

NARRATIVE: CASE EVENT DATE: 20210701
